FAERS Safety Report 5034455-9 (Version None)
Quarter: 2006Q2

REPORT INFORMATION
  Report Type: 
  Country: None (occurrence: None)
  Receive Date: 20060626
  Receipt Date: 20060608
  Transmission Date: 20061013
  Serious: Yes (Death)
  Sender: FDA-Public Use
  Company Number: GB-BRISTOL-MYERS SQUIBB COMPANY-13412259

PATIENT
  Sex: Female

DRUGS (4)
  1. ERBITUX [Suspect]
     Indication: COLORECTAL CANCER METASTATIC
     Route: 042
  2. FLUOROURACIL [Concomitant]
     Indication: COLORECTAL CANCER METASTATIC
  3. LEUCOVORIN CALCIUM [Concomitant]
     Indication: COLORECTAL CANCER METASTATIC
  4. OXALIPLATIN [Concomitant]
     Indication: COLORECTAL CANCER METASTATIC

REACTIONS (5)
  - DEATH [None]
  - DERMATITIS ACNEIFORM [None]
  - DRY SKIN [None]
  - PARONYCHIA [None]
  - PNEUMONITIS [None]
